FAERS Safety Report 25065134 (Version 2)
Quarter: 2025Q1

REPORT INFORMATION
  Report Type: Spontaneous
  Country: JP (occurrence: JP)
  Receive Date: 20250311
  Receipt Date: 20250314
  Transmission Date: 20250409
  Serious: Yes (Death, Hospitalization, Other)
  Sender: BRISTOL-MYERS SQUIBB COMPANY
  Company Number: JP-ONO-2025JP004367

PATIENT
  Age: 75 Year
  Sex: Male

DRUGS (1)
  1. OPDIVO [Suspect]
     Active Substance: NIVOLUMAB
     Indication: Bladder transitional cell carcinoma
     Route: 041
     Dates: start: 20241005

REACTIONS (5)
  - Infection [Fatal]
  - Blood creatine phosphokinase increased [Fatal]
  - Acute kidney injury [Fatal]
  - Physical deconditioning [Unknown]
  - Respiratory disorder [Unknown]
